FAERS Safety Report 23041492 (Version 1)
Quarter: 2023Q4

REPORT INFORMATION
  Report Type: Spontaneous
  Country: DE (occurrence: DE)
  Receive Date: 20231007
  Receipt Date: 20231007
  Transmission Date: 20240109
  Serious: Yes (Hospitalization)
  Sender: FDA-Public Use
  Company Number: DE-EMA-DD-20230606-7182781-124200

PATIENT
  Age: 31 Year
  Sex: Male
  Weight: 128 kg

DRUGS (4)
  1. FINGOLIMOD [Suspect]
     Active Substance: FINGOLIMOD
     Indication: Relapsing-remitting multiple sclerosis
     Dosage: 0.5 MG (ONE TABLET OF 0.5 PRIOR TO ON 25 NOV 2021)
     Route: 048
     Dates: start: 20211125
  2. FINGOLIMOD [Suspect]
     Active Substance: FINGOLIMOD
     Dosage: 0.5 MG (MOST RECENT ADMINISTRATION ONE TABLET)
     Route: 048
     Dates: start: 20200820
  3. DALFAMPRIDINE [Concomitant]
     Active Substance: DALFAMPRIDINE
     Indication: Product used for unknown indication
     Route: 048
     Dates: start: 20140313
  4. CHOLECALCIFEROL [Concomitant]
     Active Substance: CHOLECALCIFEROL
     Indication: Vitamin D deficiency
     Route: 048

REACTIONS (6)
  - Gait inability [Unknown]
  - Motor dysfunction [Unknown]
  - Multiple sclerosis [Unknown]
  - COVID-19 [Recovered/Resolved]
  - Lymphoedema [Unknown]
  - Cough [Unknown]

NARRATIVE: CASE EVENT DATE: 20211126
